FAERS Safety Report 10772434 (Version 1)
Quarter: 2015Q1

REPORT INFORMATION
  Report Type: Spontaneous
  Country: US (occurrence: US)
  Receive Date: 20150207
  Receipt Date: 20150207
  Transmission Date: 20150721
  Serious: Yes (Death, Hospitalization, Other)
  Sender: FDA-Public Use
  Company Number: US-AUROBINDO-AUR-APL-2015-01033

PATIENT
  Sex: Female
  Weight: 62.13 kg

DRUGS (4)
  1. BENICAR [Suspect]
     Active Substance: OLMESARTAN MEDOXOMIL
     Indication: HYPERTENSION
     Dosage: 20 MG, ONCE A DAY
     Route: 048
     Dates: start: 2004, end: 20141205
  2. CAPECITABINE. [Suspect]
     Active Substance: CAPECITABINE
     Indication: ADENOCARCINOMA
     Dosage: 1500 MG, TWO TIMES A DAY
     Route: 048
     Dates: start: 20141113
  3. METFORMIN [Suspect]
     Active Substance: METFORMIN HYDROCHLORIDE
     Indication: DIABETES MELLITUS
     Dosage: 1000 MG, ONCE A DAY
     Route: 048
     Dates: start: 2004, end: 20141205
  4. RUXOLITINIB [Suspect]
     Active Substance: RUXOLITINIB
     Indication: ADENOCARCINOMA
     Dosage: 15 MG, TWO TIMES A DAY
     Route: 048
     Dates: start: 20141113, end: 20141205

REACTIONS (6)
  - Hypotension [Recovering/Resolving]
  - Acute kidney injury [Fatal]
  - Palmar-plantar erythrodysaesthesia syndrome [Unknown]
  - Tachycardia [Unknown]
  - Mucosal inflammation [Unknown]
  - Dehydration [Recovered/Resolved]

NARRATIVE: CASE EVENT DATE: 2014
